FAERS Safety Report 9733296 (Version 1)
Quarter: 2013Q4

REPORT INFORMATION
  Report Type: Spontaneous
  Country: IT (occurrence: IT)
  Receive Date: 20131204
  Receipt Date: 20131204
  Transmission Date: 20140711
  Serious: Yes (Hospitalization)
  Sender: FDA-Public Use
  Company Number: IT-FRI-1000051834

PATIENT
  Age: 83 Year
  Sex: Male

DRUGS (5)
  1. NEBIVOLOL [Suspect]
     Indication: HYPERTENSION
     Dosage: 10 MG
     Route: 048
     Dates: start: 20120101, end: 20130529
  2. KEPPRA [Concomitant]
  3. PLAVIX [Concomitant]
  4. COAPROVEL [Concomitant]
  5. PANTOPRAZOLO [Concomitant]

REACTIONS (1)
  - Nodal arrhythmia [Recovered/Resolved]
